FAERS Safety Report 4402069-7 (Version None)
Quarter: 2004Q3

REPORT INFORMATION
  Report Type: 
  Country: None (occurrence: None)
  Receive Date: 20040719
  Receipt Date: 20040719
  Transmission Date: 20050211
  Serious: Yes (Life-Threatening, Hospitalization, Other)
  Sender: FDA-Public Use
  Company Number: None

PATIENT
  Age: 71 Year
  Sex: Male
  Weight: 81.6475 kg

DRUGS (2)
  1. AMIODARONE HCL [Suspect]
     Dosage: ONE DAILY
  2. TELEVISION [Suspect]

REACTIONS (1)
  - ARRHYTHMIA [None]
